FAERS Safety Report 4359008-7 (Version None)
Quarter: 2004Q2

REPORT INFORMATION
  Report Type: 
  Country: None (occurrence: None)
  Receive Date: 20040512
  Receipt Date: 20040430
  Transmission Date: 20050107
  Serious: Yes (Death)
  Sender: FDA-Public Use
  Company Number: DE-JNJFOC-20040404685

PATIENT
  Sex: 0

DRUGS (3)
  1. REOPRO [Suspect]
     Indication: ACUTE MYOCARDIAL INFARCTION
     Dosage: SEE IMAGE
  2. ASPIRIN [Concomitant]
  3. HEPARIN [Concomitant]

REACTIONS (1)
  - DEATH [None]
